FAERS Safety Report 9068756 (Version 3)
Quarter: 2013Q1

REPORT INFORMATION
  Report Type: Spontaneous
  Country: JP (occurrence: None)
  Receive Date: 20130122
  Receipt Date: 20130129
  Transmission Date: 20140127
  Serious: Yes (Hospitalization)
  Sender: FDA-Public Use
  Company Number: JP-010626

PATIENT
  Age: 74 Year
  Sex: Male

DRUGS (19)
  1. DEGARELIX [Suspect]
     Indication: PROSTATE CANCER
     Route: 058
     Dates: start: 20121206, end: 20121206
  2. TAXOTERE [Suspect]
     Indication: PROSTATE CANCER
     Route: 041
     Dates: start: 20121206, end: 20121206
  3. TRAMADOL AND ACETAMINOPHEN (TRAMADOL HYDROCHLORIDE AND ACETAMINOPHEN) (NOT SPECIFIED) [Suspect]
     Route: 048
     Dates: start: 20121130, end: 20121226
  4. FLOMOX [Suspect]
     Dates: start: 20121218, end: 20121226
  5. ZOLADEX [Concomitant]
  6. ZOMETA [Concomitant]
  7. BAYASPIRIN [Concomitant]
  8. FAMOTIDINE [Concomitant]
  9. DIOVAN [Concomitant]
  10. URIEF [Concomitant]
  11. AMLODIPINE [Concomitant]
  12. LIPITOR [Concomitant]
  13. PREDNISOLONE [Concomitant]
  14. LYRICA [Concomitant]
  15. NOVAMIN [Concomitant]
  16. CADUET [Concomitant]
  17. GLACTIV [Concomitant]
  18. SG /01737201/ [Concomitant]
  19. MEDICON / 00048102/ [Concomitant]

REACTIONS (5)
  - Interstitial lung disease [None]
  - Feeling abnormal [None]
  - Nasopharyngitis [None]
  - Drug resistance [None]
  - Prostatic specific antigen increased [None]
